FAERS Safety Report 8853762 (Version 1)
Quarter: 2012Q4

REPORT INFORMATION
  Report Type: 
  Country: CN (occurrence: CN)
  Receive Date: 20121023
  Receipt Date: 20121023
  Transmission Date: 20130627
  Serious: Yes (Other)
  Sender: FDA-Public Use
  Company Number: CN-009507513-1210CHN008855

PATIENT
  Age: 70 Year
  Sex: Male

DRUGS (2)
  1. PROSCAR [Suspect]
     Indication: BENIGN PROSTATIC HYPERPLASIA
     Dosage: 5 mg, qd
     Route: 048
  2. PROSCAR [Suspect]
     Dosage: 5 mg, qd
     Route: 048
     Dates: start: 20121016, end: 20121017

REACTIONS (2)
  - Prostatic operation [Unknown]
  - Dizziness [Recovering/Resolving]
